FAERS Safety Report 7579820-0 (Version None)
Quarter: 2011Q2

REPORT INFORMATION
  Report Type: 
  Country: None (occurrence: None)
  Receive Date: 20110629
  Receipt Date: 20110228
  Transmission Date: 20111010
  Serious: No
  Sender: FDA-Public Use
  Company Number: A0916843A

PATIENT
  Sex: Female

DRUGS (2)
  1. ZYBAN [Suspect]
     Route: 065
  2. UNSPECIFIED PATCH [Suspect]
     Route: 065

REACTIONS (1)
  - DRUG INEFFECTIVE [None]
